FAERS Safety Report 7650375-5 (Version None)
Quarter: 2011Q3

REPORT INFORMATION
  Report Type: 
  Country: None (occurrence: None)
  Receive Date: 20110721
  Receipt Date: 20110711
  Transmission Date: 20111222
  Serious: Yes (Hospitalization)
  Sender: FDA-Public Use
  Company Number: 2011029169

PATIENT
  Age: 13 Year

DRUGS (6)
  1. ASTOMIN (DIMEMORFAN PHOSPHATE) [Concomitant]
  2. MUCODYNE (CARBOCISTEINE) [Concomitant]
  3. IBUPROFEN [Concomitant]
  4. IMMUNE GLOBULIN (HUMAN) [Suspect]
     Indication: BRUTON'S AGAMMAGLOBULINAEMIA
  5. VALTREX [Concomitant]
  6. INTAL [Concomitant]

REACTIONS (5)
  - TREMOR [None]
  - ENCEPHALITIS [None]
  - SENSORY DISTURBANCE [None]
  - TINNITUS [None]
  - HERPES ZOSTER OTICUS [None]
